FAERS Safety Report 13819071 (Version 1)
Quarter: 2017Q3

REPORT INFORMATION
  Report Type: Spontaneous
  Country: US (occurrence: US)
  Receive Date: 20170801
  Receipt Date: 20170801
  Transmission Date: 20171127
  Serious: Yes (Hospitalization, Other)
  Sender: FDA-Public Use
  Company Number: US-TAKEDA-2017MPI006436

PATIENT
  Age: 55 Year
  Sex: Female
  Weight: 86 kg

DRUGS (2)
  1. VELCADE [Suspect]
     Active Substance: BORTEZOMIB
     Indication: PRODUCT USED FOR UNKNOWN INDICATION
     Dosage: 2.425 MG, UNK
     Route: 058
     Dates: start: 20170715, end: 20170715
  2. DARATUMUMAB [Suspect]
     Active Substance: DARATUMUMAB
     Indication: PRODUCT USED FOR UNKNOWN INDICATION
     Dosage: 1340 MG, UNK
     Route: 042
     Dates: start: 20170711, end: 20170711

REACTIONS (6)
  - Abdominal pain [Recovering/Resolving]
  - Hepatic steatosis [Unknown]
  - Pyrexia [Recovering/Resolving]
  - Headache [Unknown]
  - Dyspnoea [Unknown]
  - Back pain [Unknown]

NARRATIVE: CASE EVENT DATE: 20170716
